FAERS Safety Report 8836994 (Version 1)
Quarter: 2012Q4

REPORT INFORMATION
  Report Type: 
  Country: GB (occurrence: GB)
  Receive Date: 20121012
  Receipt Date: 20121012
  Transmission Date: 20130627
  Serious: Yes (Other)
  Sender: FDA-Public Use
  Company Number: GB-SANOFI-AVENTIS-2012SA073117

PATIENT
  Age: 71 Year
  Sex: Female
  Weight: 75.8 kg

DRUGS (8)
  1. CLOPIDOGREL BISULFATE [Suspect]
     Indication: DRUG USE FOR UNKNOWN INDICATION
     Dates: start: 20120528
  2. ATORVASTATIN [Concomitant]
     Indication: DRUG USE FOR UNKNOWN INDICATION
     Dates: start: 20120528, end: 20120625
  3. ATORVASTATIN [Concomitant]
     Indication: DRUG USE FOR UNKNOWN INDICATION
     Dates: start: 20120629, end: 20120727
  4. LERCANIDIPINE HYDROCHLORIDE [Concomitant]
     Indication: DRUG USE FOR UNKNOWN INDICATION
     Dates: start: 20120528, end: 20120625
  5. LERCANIDIPINE HYDROCHLORIDE [Concomitant]
     Indication: DRUG USE FOR UNKNOWN INDICATION
     Dates: start: 20120629, end: 20120727
  6. RANITIDINE [Concomitant]
     Indication: DRUG USE FOR UNKNOWN INDICATION
     Dates: start: 20120528, end: 20120625
  7. RANITIDINE [Concomitant]
     Indication: DRUG USE FOR UNKNOWN INDICATION
     Dates: start: 20120629, end: 20120727
  8. HYOSCINE BUTYLBROMIDE [Concomitant]
     Indication: DRUG USE FOR UNKNOWN INDICATION
     Dates: start: 20120629, end: 20120706

REACTIONS (1)
  - Paraesthesia [Recovered/Resolved]
